FAERS Safety Report 7953419-6 (Version None)
Quarter: 2011Q4

REPORT INFORMATION
  Report Type: 
  Country: None (occurrence: None)
  Receive Date: 20111202
  Receipt Date: 20111121
  Transmission Date: 20120403
  Serious: Yes (Hospitalization, Other)
  Sender: FDA-Public Use
  Company Number: US-ELI_LILLY_AND_COMPANY-US201109002446

PATIENT
  Sex: Female
  Weight: 80.272 kg

DRUGS (1)
  1. CYMBALTA [Suspect]
     Indication: PAIN
     Dosage: 30 MG, QD
     Route: 048
     Dates: start: 20110822, end: 20110822

REACTIONS (2)
  - PSYCHOTIC DISORDER [None]
  - SEROTONIN SYNDROME [None]
